FAERS Safety Report 8615854-2 (Version None)
Quarter: 2012Q3

REPORT INFORMATION
  Report Type: 
  Country: None (occurrence: None)
  Receive Date: 20120823
  Receipt Date: 20120815
  Transmission Date: 20120928
  Serious: Yes (Hospitalization, Other)
  Sender: FDA-Public Use
  Company Number: US-009507513-1201USA00343

PATIENT

DRUGS (6)
  1. FOSAMAX [Suspect]
     Dosage: 5 MG, QD
     Route: 048
     Dates: start: 20020101
  2. FOSAMAX [Suspect]
     Dosage: 35 MG, QW
     Route: 048
     Dates: start: 20021017
  3. FOSAMAX [Suspect]
     Dosage: 70 MG, QW
     Route: 048
     Dates: start: 20080311
  4. FOSAMAX [Suspect]
     Indication: OSTEOPENIA
     Dosage: 10 MG, QD
     Route: 048
     Dates: start: 20001120
  5. MK-9278 [Concomitant]
     Dates: start: 19900101
  6. FOSAMAX [Suspect]
     Dosage: 70 MG, QW
     Route: 048
     Dates: end: 20100208

REACTIONS (18)
  - ARTHRITIS [None]
  - HYPERTENSION [None]
  - CHRONIC OBSTRUCTIVE PULMONARY DISEASE [None]
  - MOBILITY DECREASED [None]
  - HYPERCHOLESTEROLAEMIA [None]
  - HAEMOGLOBIN DECREASED [None]
  - OSTEOPOROSIS [None]
  - OPEN REDUCTION OF FRACTURE [None]
  - OVARIAN CANCER [None]
  - FEMUR FRACTURE [None]
  - LEUKOCYTOSIS [None]
  - PEPTIC ULCER [None]
  - INTERVERTEBRAL DISC DEGENERATION [None]
  - FALL [None]
  - BACK PAIN [None]
  - LUMBAR SPINAL STENOSIS [None]
  - GASTROOESOPHAGEAL REFLUX DISEASE [None]
  - BURSITIS [None]
